FAERS Safety Report 11173707 (Version 6)
Quarter: 2015Q4

REPORT INFORMATION
  Report Type: Report from Study
  Country: PL (occurrence: PL)
  Receive Date: 20150609
  Receipt Date: 20151223
  Transmission Date: 20160304
  Serious: Yes (Hospitalization, Other)
  Sender: FDA-Public Use
  Company Number: PL-ROCHE-1588724

PATIENT
  Age: 66 Year
  Sex: Male
  Weight: 80 kg

DRUGS (72)
  1. OBINUTUZUMAB [Suspect]
     Active Substance: OBINUTUZUMAB
     Dosage: C1D8
     Route: 042
     Dates: start: 20150427
  2. OBINUTUZUMAB [Suspect]
     Active Substance: OBINUTUZUMAB
     Dosage: C2D1, LAST DOSE PRIOR TO SAE 18/MAY/2015, FORM:LIQUID CONCENTRATE 100 MG/250ML?DRUG PERMANENTLY DISC
     Route: 042
     Dates: start: 20150518
  3. CYCLOPHOSPHAMIDE. [Suspect]
     Active Substance: CYCLOPHOSPHAMIDE
     Indication: CHRONIC LYMPHOCYTIC LEUKAEMIA
     Dosage: C1D1
     Route: 048
     Dates: start: 20150401, end: 20150401
  4. ENCORTON [Suspect]
     Active Substance: PREDNISONE
     Route: 048
     Dates: start: 20150609, end: 20150615
  5. METOPROLOL TARTRATE. [Concomitant]
     Active Substance: METOPROLOL TARTRATE
     Indication: CORONARY ARTERY DISEASE
     Route: 048
     Dates: start: 19971231
  6. FUROSEMID [Concomitant]
     Active Substance: FUROSEMIDE
     Indication: CORONARY ARTERY DISEASE
     Route: 048
     Dates: start: 2009
  7. FUROSEMID [Concomitant]
     Active Substance: FUROSEMIDE
     Route: 042
     Dates: start: 20150408, end: 20150408
  8. APO-TAMIS [Concomitant]
     Indication: BENIGN PROSTATIC HYPERPLASIA
     Route: 048
     Dates: start: 2007
  9. ALLOPURINOL. [Concomitant]
     Active Substance: ALLOPURINOL
     Route: 048
     Dates: start: 20150504
  10. DIPHERGAN [Concomitant]
     Route: 048
     Dates: start: 20150401, end: 20150401
  11. DIPHERGAN [Concomitant]
     Route: 048
     Dates: start: 20150427, end: 20150427
  12. SODIUM CHLORIDE. [Concomitant]
     Active Substance: SODIUM CHLORIDE
     Dosage: DOSE:1000 ML
     Route: 042
     Dates: start: 20150407, end: 20150408
  13. HEPATIL [Concomitant]
     Route: 048
     Dates: start: 20150402, end: 20150402
  14. CYCLOPHOSPHAMIDE. [Suspect]
     Active Substance: CYCLOPHOSPHAMIDE
     Dosage: C2D1
     Route: 048
     Dates: start: 20150518, end: 20150518
  15. ENCORTON [Suspect]
     Active Substance: PREDNISONE
     Indication: DERMATITIS ALLERGIC
     Route: 048
     Dates: start: 20150602, end: 20150604
  16. ENCORTON [Suspect]
     Active Substance: PREDNISONE
     Route: 048
     Dates: start: 20150707, end: 20150729
  17. FUROSEMID [Concomitant]
     Active Substance: FUROSEMIDE
     Route: 042
     Dates: start: 20150404, end: 20150404
  18. FUROSEMID [Concomitant]
     Active Substance: FUROSEMIDE
     Route: 042
     Dates: start: 20150406, end: 20150406
  19. ZOCOR [Concomitant]
     Active Substance: SIMVASTATIN
     Indication: HYPERCHOLESTEROLAEMIA
     Route: 048
     Dates: start: 2005
  20. PARACETAMOLUM [Concomitant]
     Route: 048
     Dates: start: 20150518, end: 20150518
  21. ENCORTON [Suspect]
     Active Substance: PREDNISONE
     Route: 048
     Dates: start: 20150616, end: 20150706
  22. DEXAVEN [Suspect]
     Active Substance: DEXAMETHASONE
     Indication: PROPHYLAXIS
     Route: 042
     Dates: start: 20150420, end: 20150420
  23. PARACETAMOLUM [Concomitant]
     Route: 048
     Dates: start: 20150420, end: 20150420
  24. DIPHERGAN [Concomitant]
     Route: 048
     Dates: start: 20150504, end: 20150504
  25. SODIUM CHLORIDE. [Concomitant]
     Active Substance: SODIUM CHLORIDE
     Dosage: DOSE:1000 ML
     Route: 042
     Dates: start: 20150403, end: 20150406
  26. HEPATIL [Concomitant]
     Route: 048
     Dates: start: 20150403, end: 20150408
  27. FLUDARABINE [Suspect]
     Active Substance: FLUDARABINE PHOSPHATE
     Dosage: C1D3
     Route: 048
     Dates: start: 20150421, end: 20150421
  28. FLUDARABINE [Suspect]
     Active Substance: FLUDARABINE PHOSPHATE
     Dosage: C2D1
     Route: 048
     Dates: start: 20150518, end: 20150518
  29. CYCLOPHOSPHAMIDE. [Suspect]
     Active Substance: CYCLOPHOSPHAMIDE
     Dosage: C1D2, DOSE REDUCED
     Route: 048
     Dates: start: 20150420, end: 20150420
  30. HYDROCORTISON [Suspect]
     Active Substance: HYDROCORTISONE
     Indication: CHRONIC LYMPHOCYTIC LEUKAEMIA
     Route: 048
     Dates: start: 20150401, end: 20150401
  31. HYDROCORTISON [Suspect]
     Active Substance: HYDROCORTISONE
     Indication: DERMATITIS ALLERGIC
     Route: 065
     Dates: start: 20150602, end: 20150609
  32. GLIBETIC (POLAND) [Concomitant]
     Indication: DIABETES MELLITUS
     Route: 048
     Dates: start: 2000
  33. METFORMAX [Concomitant]
     Active Substance: METFORMIN HYDROCHLORIDE
     Route: 048
     Dates: start: 2007
  34. PARACETAMOLUM [Concomitant]
     Route: 042
     Dates: start: 20150401, end: 20150402
  35. DIPHERGAN [Concomitant]
     Route: 048
     Dates: start: 20150420, end: 20150420
  36. SODIUM CHLORIDE. [Concomitant]
     Active Substance: SODIUM CHLORIDE
     Dosage: DOSE:1000 ML
     Route: 042
     Dates: start: 20150402, end: 20150402
  37. PANTOPRAZOLUM [Concomitant]
     Dosage: IN 0.9% SODIUM?CHLORIDE, 40 IN 20
     Route: 042
     Dates: start: 20150601, end: 20150601
  38. OBINUTUZUMAB [Suspect]
     Active Substance: OBINUTUZUMAB
     Dosage: C1D15
     Route: 042
     Dates: start: 20150504
  39. FLUDARABINE [Suspect]
     Active Substance: FLUDARABINE PHOSPHATE
     Dosage: C2D3?DRUG PERMANENTLY DISCONTINUED ON 29/JUL/2015 IN RESPONSE TO THE GENERALIZED ALLERGIC REACTION W
     Route: 048
     Dates: start: 20150520, end: 20150520
  40. INHIBACE [Concomitant]
     Active Substance: CILAZAPRIL ANHYDROUS
     Indication: CORONARY ARTERY DISEASE
     Route: 048
     Dates: start: 2010
  41. ALLOPURINOL. [Concomitant]
     Active Substance: ALLOPURINOL
     Route: 048
     Dates: start: 20150401, end: 20150401
  42. PARACETAMOLUM [Concomitant]
     Route: 048
     Dates: start: 20150504, end: 20150504
  43. ATORIS [Concomitant]
     Active Substance: ATORVASTATIN CALCIUM
     Route: 048
     Dates: start: 20150622
  44. OBINUTUZUMAB [Suspect]
     Active Substance: OBINUTUZUMAB
     Indication: CHRONIC LYMPHOCYTIC LEUKAEMIA
     Route: 042
     Dates: start: 20150401
  45. DEXAVEN [Suspect]
     Active Substance: DEXAMETHASONE
     Route: 042
     Dates: start: 20150401, end: 20150401
  46. GLUCOBAY [Concomitant]
     Active Substance: ACARBOSE
     Indication: DIABETES MELLITUS
     Route: 048
     Dates: start: 2009
  47. FUROSEMID [Concomitant]
     Active Substance: FUROSEMIDE
     Route: 042
     Dates: start: 20150402, end: 20150402
  48. FUROSEMID [Concomitant]
     Active Substance: FUROSEMIDE
     Route: 042
     Dates: start: 20150601, end: 20150601
  49. ALLOPURINOL. [Concomitant]
     Active Substance: ALLOPURINOL
     Route: 048
     Dates: start: 20140402, end: 20150504
  50. ALLOPURINOL. [Concomitant]
     Active Substance: ALLOPURINOL
     Route: 048
     Dates: start: 20150225, end: 20150504
  51. SODIUM CHLORIDE. [Concomitant]
     Active Substance: SODIUM CHLORIDE
     Dosage: DOSE:20ML,?SAME DOSE DOSE WAS GIVEN TWO TIMES
     Route: 042
     Dates: start: 20150601, end: 20150601
  52. TRIFAS (POLAND) [Concomitant]
     Route: 048
     Dates: start: 20150622
  53. PANTOPRAZOLUM [Concomitant]
     Indication: DERMATITIS ALLERGIC
     Route: 048
     Dates: start: 20150622
  54. OBINUTUZUMAB [Suspect]
     Active Substance: OBINUTUZUMAB
     Dosage: C1D2
     Route: 042
     Dates: start: 20150420
  55. FLUDARABINE [Suspect]
     Active Substance: FLUDARABINE PHOSPHATE
     Indication: CHRONIC LYMPHOCYTIC LEUKAEMIA
     Dosage: C1D1
     Route: 048
     Dates: start: 20150401, end: 20150401
  56. FLUDARABINE [Suspect]
     Active Substance: FLUDARABINE PHOSPHATE
     Dosage: C1D2
     Route: 048
     Dates: start: 20150420, end: 20150420
  57. ENCORTON [Suspect]
     Active Substance: PREDNISONE
     Dosage: EVERY OTHER DAY
     Route: 050
     Dates: start: 20150730, end: 20150812
  58. CORHYDRON (POLAND) [Suspect]
     Active Substance: HYDROCORTISONE SODIUM SUCCINATE
     Indication: DERMATITIS ALLERGIC
     Dosage: 200 MG IN 20 ML
     Route: 042
     Dates: start: 20150601, end: 20150601
  59. PARACETAMOLUM [Concomitant]
     Route: 048
     Dates: start: 20150427, end: 20150427
  60. DIPHERGAN [Concomitant]
     Route: 048
     Dates: start: 20150518, end: 20150518
  61. FLUDARABINE [Suspect]
     Active Substance: FLUDARABINE PHOSPHATE
     Dosage: C2D2
     Route: 048
     Dates: start: 20150519, end: 20150519
  62. CYCLOPHOSPHAMIDE. [Suspect]
     Active Substance: CYCLOPHOSPHAMIDE
     Dosage: C1D3,
     Route: 048
     Dates: start: 20150421, end: 20150421
  63. CYCLOPHOSPHAMIDE. [Suspect]
     Active Substance: CYCLOPHOSPHAMIDE
     Dosage: C2D2
     Route: 048
     Dates: start: 20150519, end: 20150519
  64. CYCLOPHOSPHAMIDE. [Suspect]
     Active Substance: CYCLOPHOSPHAMIDE
     Dosage: C2D3?DRUG PERMANENTLY DISCONTINUED ON 29/JUL/2015 IN RESPONSE TO THE GENERALIZED ALLERGIC REACTION W
     Route: 048
     Dates: start: 20150520, end: 20150520
  65. ENCORTON [Suspect]
     Active Substance: PREDNISONE
     Route: 048
     Dates: start: 20150604, end: 20150608
  66. DEXAVEN [Suspect]
     Active Substance: DEXAMETHASONE
     Indication: DERMATITIS ALLERGIC
     Dosage: 8 IN 100 MG IN ML IN 0.9% SODIUM CHLORIDE
     Route: 042
     Dates: start: 20150601, end: 20150601
  67. DEXAVEN [Suspect]
     Active Substance: DEXAMETHASONE
     Route: 042
     Dates: start: 20150427, end: 20150427
  68. POLOCARD [Concomitant]
     Active Substance: ASPIRIN
     Indication: PROPHYLAXIS
     Route: 048
     Dates: start: 2008
  69. AMOKSIKLAV [Concomitant]
     Active Substance: AMOXICILLIN\CLAVULANATE POTASSIUM
     Route: 048
     Dates: start: 20150413, end: 20150419
  70. THIOCODIN (POLAND) [Concomitant]
     Route: 048
     Dates: start: 20150413, end: 20150413
  71. HYDROXIZINUM [Concomitant]
     Route: 048
     Dates: start: 20150404, end: 20150407
  72. NIVESTIM [Concomitant]
     Active Substance: FILGRASTIM
     Dosage: DOSE:48 MIU
     Route: 058
     Dates: start: 20150403, end: 20150405

REACTIONS (2)
  - Dermatitis allergic [Recovered/Resolved]
  - Diabetes mellitus inadequate control [Recovered/Resolved]

NARRATIVE: CASE EVENT DATE: 20150525
